FAERS Safety Report 13522688 (Version 3)
Quarter: 2017Q2

REPORT INFORMATION
  Report Type: Report from Study
  Country: JP (occurrence: JP)
  Receive Date: 20170508
  Receipt Date: 20170606
  Transmission Date: 20170830
  Serious: Yes (Hospitalization)
  Sender: FDA-Public Use
  Company Number: JP-CONCORDIA PHARMACEUTICALS INC.-E2B_00008105

PATIENT
  Age: 68 Year
  Sex: Male

DRUGS (20)
  1. ZONISAMIDE. [Suspect]
     Active Substance: ZONISAMIDE
     Indication: DEMENTIA WITH LEWY BODIES
     Route: 048
     Dates: start: 20160813, end: 20170419
  2. CONSTAN [Concomitant]
     Active Substance: ALPRAZOLAM
  3. REFLEX [Concomitant]
     Active Substance: MIRTAZAPINE
  4. LIVALO [Concomitant]
     Active Substance: PITAVASTATIN CALCIUM
  5. ZONISAMIDE. [Suspect]
     Active Substance: ZONISAMIDE
     Indication: PARKINSONISM
     Route: 048
     Dates: start: 20160423, end: 20160812
  6. DOPACOL [Suspect]
     Active Substance: CARBIDOPA\LEVODOPA
     Indication: PARKINSONISM
     Route: 048
     Dates: start: 20151211, end: 20170508
  7. DOPACOL [Suspect]
     Active Substance: CARBIDOPA\LEVODOPA
     Route: 048
     Dates: start: 20170509
  8. QUETIAPINE. [Concomitant]
     Active Substance: QUETIAPINE
  9. SODIUM PICOSULFATE HYDRATE [Concomitant]
     Active Substance: SODIUM PICOSULFATE
  10. RIVOTRIL [Concomitant]
     Active Substance: CLONAZEPAM
  11. TSUMURA YOKUKANSAN EXTRACT GRANULES FOR ETHICAL USE [Concomitant]
     Active Substance: HERBALS
  12. TRAZODONE HYDROCHLORIDE. [Concomitant]
     Active Substance: TRAZODONE HYDROCHLORIDE
  13. AMITIZA [Concomitant]
     Active Substance: LUBIPROSTONE
  14. NAFTOPIDIL [Concomitant]
     Active Substance: NAFTOPIDIL
  15. ETHYL LOFLAZEPATE [Concomitant]
     Active Substance: ETHYL LOFLAZEPATE
  16. NORVASC [Concomitant]
     Active Substance: AMLODIPINE BESYLATE
  17. PARIET [Concomitant]
     Active Substance: RABEPRAZOLE SODIUM
  18. BETANIS [Concomitant]
     Active Substance: MIRABEGRON
  19. FEXOFENADINE HYDROCHLORIDE. [Concomitant]
     Active Substance: FEXOFENADINE HYDROCHLORIDE
  20. BLOPRESS [Concomitant]
     Active Substance: CANDESARTAN CILEXETIL

REACTIONS (6)
  - Hallucinations, mixed [Not Recovered/Not Resolved]
  - Frustration tolerance decreased [Not Recovered/Not Resolved]
  - Paranoia [Not Recovered/Not Resolved]
  - Irritability [Recovering/Resolving]
  - Psychiatric symptom [Recovering/Resolving]
  - Aggression [Not Recovered/Not Resolved]

NARRATIVE: CASE EVENT DATE: 20170419
